FAERS Safety Report 12789737 (Version 1)
Quarter: 2016Q3

REPORT INFORMATION
  Report Type: Spontaneous
  Country: GB (occurrence: GB)
  Receive Date: 20160928
  Receipt Date: 20160928
  Transmission Date: 20161109
  Serious: Yes (Hospitalization, Other)
  Sender: FDA-Public Use
  Company Number: GB-JNJFOC-JAUK29581

PATIENT
  Age: 5 Year
  Sex: Female

DRUGS (2)
  1. NONE [Concomitant]
     Active Substance: UNSPECIFIED INGREDIENT
  2. VERMOX [Suspect]
     Active Substance: MEBENDAZOLE
     Indication: ENTEROBIASIS
     Route: 048
     Dates: start: 19960721

REACTIONS (12)
  - Visual impairment [Recovered/Resolved]
  - Encephalitis [Recovered/Resolved]
  - Generalised tonic-clonic seizure [Recovered/Resolved]
  - Seizure [Recovered/Resolved]
  - Coma [Recovered/Resolved]
  - Pyrexia [Recovered/Resolved]
  - Disorientation [Recovered/Resolved]
  - Photopsia [Recovered/Resolved]
  - Agitation [Recovered/Resolved]
  - Vomiting [Recovered/Resolved]
  - Lethargy [Recovered/Resolved]
  - Hypotonia [Recovered/Resolved]

NARRATIVE: CASE EVENT DATE: 19960721
